FAERS Safety Report 7592122-1 (Version None)
Quarter: 2011Q3

REPORT INFORMATION
  Report Type: 
  Country: None (occurrence: None)
  Receive Date: 20110706
  Receipt Date: 20090227
  Transmission Date: 20111222
  Serious: Yes (Hospitalization, Other)
  Sender: FDA-Public Use
  Company Number: US-BAYER-200914359NA

PATIENT
  Age: 69 Year
  Sex: Female
  Weight: 73.923 kg

DRUGS (21)
  1. NAPROXEN (ALEVE) [Concomitant]
  2. PRILOSEC [Concomitant]
     Dosage: 20 MG
  3. HYDROCHLOROTHIAZIDE [Concomitant]
     Dosage: 50 MG
     Route: 048
  4. SOLU-MEDROL [Concomitant]
     Dosage: 500 MG
     Route: 042
     Dates: start: 20041028
  5. CEFAZOLIN [Concomitant]
     Dosage: 1 G
     Route: 042
     Dates: start: 20041028
  6. TRASYLOL [Suspect]
     Indication: PRODUCT USED FOR UNKNOWN INDICATION
     Dosage: 200 CC LOADING DOSE
     Route: 042
     Dates: start: 20041028, end: 20041029
  7. FAMOTIDINE [Concomitant]
     Dosage: 20 MG
     Route: 042
     Dates: start: 20041028
  8. PHENYLEPHRINE HCL [Concomitant]
     Dosage: UNK
     Dates: start: 20041028
  9. ZOFRAN [Concomitant]
     Dosage: 4 MG
     Dates: start: 20041028
  10. KETOROLAC TROMETHAMINE [Concomitant]
     Dosage: 30 MG
     Route: 042
     Dates: start: 20041028
  11. PLATELETS [Concomitant]
     Dosage: 2 U, ONCE
     Route: 042
  12. TYLENOL PM [Concomitant]
     Route: 048
  13. RED BLOOD CELLS [Concomitant]
     Dosage: 2 U, ONCE
     Route: 042
  14. HEPARIN [Concomitant]
     Dosage: MULTIPLE DOSES
     Dates: start: 20041028
  15. PROTAMINE SULFATE [Concomitant]
     Dosage: 500 MG
     Dates: start: 20041028
  16. PAVULON [Concomitant]
     Dosage: UNK
     Dates: start: 20041028
  17. TRASYLOL [Suspect]
     Indication: AORTIC SURGERY
     Dosage: 50 ML/HOUR INFUSION
     Route: 042
     Dates: start: 20041028, end: 20041029
  18. EPINEPHRINE [Concomitant]
     Dosage: UNK
     Dates: start: 20041028
  19. ANCEF [Concomitant]
     Dosage: 1 G
     Dates: start: 20041028
  20. ACETYLSALICYLIC ACID SRT [Concomitant]
  21. ISOVUE-128 [Concomitant]
     Indication: CATHETERISATION CARDIAC
     Dosage: UNK
     Dates: start: 20040913

REACTIONS (11)
  - RENAL FAILURE [None]
  - RENAL INJURY [None]
  - FEAR [None]
  - STRESS [None]
  - PAIN [None]
  - UNEVALUABLE EVENT [None]
  - ANHEDONIA [None]
  - INJURY [None]
  - RENAL IMPAIRMENT [None]
  - EMOTIONAL DISTRESS [None]
  - ANXIETY [None]
